FAERS Safety Report 7626382-5 (Version None)
Quarter: 2011Q3

REPORT INFORMATION
  Report Type: 
  Country: None (occurrence: None)
  Receive Date: 20110721
  Receipt Date: 20110718
  Transmission Date: 20111222
  Serious: Yes (Death)
  Sender: FDA-Public Use
  Company Number: PHHY2011NL64771

PATIENT
  Sex: Female

DRUGS (3)
  1. SODIUM CHLORIDE [Concomitant]
     Dosage: 0.9% 100ML BAG
  2. ZOLEDRONOC ACID [Suspect]
     Indication: OSTEOPOROSIS
     Dosage: 5MG/100ML
     Route: 042
     Dates: start: 20110524
  3. RHYTHMIC RESERVOIR [Concomitant]
     Dosage: 160 ML, COMPLETE SET

REACTIONS (1)
  - DEATH [None]
